FAERS Safety Report 11580542 (Version 1)
Quarter: 2015Q3

REPORT INFORMATION
  Report Type: Spontaneous
  Country: US (occurrence: US)
  Receive Date: 20150916
  Receipt Date: 20150916
  Transmission Date: 20151125
  Serious: No
  Sender: FDA-Public Use
  Company Number: US-ELI_LILLY_AND_COMPANY-US200804002094

PATIENT
  Age: 62 Year
  Sex: Female

DRUGS (2)
  1. TOPROL XL [Concomitant]
     Active Substance: METOPROLOL SUCCINATE
     Dates: start: 200803, end: 2008
  2. FORTEO [Suspect]
     Active Substance: TERIPARATIDE

REACTIONS (2)
  - Dry throat [Unknown]
  - Headache [Unknown]

NARRATIVE: CASE EVENT DATE: 20080324
